FAERS Safety Report 7721132-6 (Version None)
Quarter: 2011Q3

REPORT INFORMATION
  Report Type: 
  Country: None (occurrence: None)
  Receive Date: 20110831
  Receipt Date: 20110829
  Transmission Date: 20111222
  Serious: Yes (Other)
  Sender: FDA-Public Use
  Company Number: US-ABBOTT-11P-163-0842780-00

PATIENT
  Sex: Female

DRUGS (3)
  1. PRED FORTE [Concomitant]
     Indication: PRODUCT USED FOR UNKNOWN INDICATION
     Dosage: 4 TIMES A DAY TO RIGHT EYE
     Route: 047
     Dates: start: 20090101
  2. HUMIRA [Suspect]
     Route: 058
     Dates: end: 20110729
  3. HUMIRA [Suspect]
     Indication: PSORIATIC ARTHROPATHY
     Route: 058
     Dates: start: 20100201, end: 20110615

REACTIONS (14)
  - FOLLICULITIS [None]
  - FUNGAL INFECTION [None]
  - RASH MACULAR [None]
  - PSORIASIS [None]
  - PURULENCE [None]
  - UPPER RESPIRATORY TRACT INFECTION [None]
  - UVEITIS [None]
  - EYE DISORDER [None]
  - URINARY TRACT INFECTION [None]
  - CHEILITIS [None]
  - PYREXIA [None]
  - SKIN LESION [None]
  - DRUG INEFFECTIVE [None]
  - PNEUMONIA [None]
